FAERS Safety Report 6653409-X (Version None)
Quarter: 2010Q1

REPORT INFORMATION
  Report Type: 
  Country: None (occurrence: None)
  Receive Date: 20100317
  Receipt Date: 20100317
  Transmission Date: 20100710
  Serious: No
  Sender: FDA-Public Use
  Company Number: None

PATIENT
  Age: 33 Year
  Sex: Female

DRUGS (2)
  1. AUGMENTIN [Suspect]
     Dates: start: 20080902, end: 20080922
  2. BACTRIM [Suspect]
     Dates: start: 20040904, end: 20080914

REACTIONS (6)
  - AUTOIMMUNE HEPATITIS [None]
  - CHOLELITHIASIS [None]
  - GALLBLADDER POLYP [None]
  - HEPATITIS CHOLESTATIC [None]
  - LIVER INJURY [None]
  - STAPHYLOCOCCAL ABSCESS [None]
